FAERS Safety Report 5324548-0 (Version None)
Quarter: 2007Q2

REPORT INFORMATION
  Report Type: 
  Country: None (occurrence: None)
  Receive Date: 20070508
  Receipt Date: 20070426
  Transmission Date: 20071010
  Serious: Yes (Hospitalization)
  Sender: FDA-Public Use
  Company Number: RENA-12160

PATIENT
  Age: 71 Year
  Sex: Female
  Weight: 55 kg

DRUGS (10)
  1. RENAGEL [Suspect]
     Indication: HYPERPHOSPHATAEMIA
     Dosage: 0.5 G TID PO
     Route: 048
     Dates: start: 20061207, end: 20070319
  2. WARKIM CAPSULES (ALFACALCIDOL) [Concomitant]
  3. ASPIRIN [Concomitant]
  4. AMLODIN [Concomitant]
  5. CARDENALIN [Concomitant]
  6. RENIVACE [Concomitant]
  7. LANSOPRAZOLE [Concomitant]
  8. EPADEL [Concomitant]
  9. NOVOLIN N [Concomitant]
  10. LAXOBERON [Concomitant]

REACTIONS (8)
  - ABNORMAL FAECES [None]
  - CONSTIPATION [None]
  - DIALYSIS [None]
  - INTESTINAL ISCHAEMIA [None]
  - METABOLIC ACIDOSIS [None]
  - NO THERAPEUTIC RESPONSE [None]
  - PAIN IN EXTREMITY [None]
  - SHOCK [None]
